FAERS Safety Report 19468882 (Version 1)
Quarter: 2021Q2

REPORT INFORMATION
  Report Type: Spontaneous
  Country: US (occurrence: US)
  Receive Date: 20210628
  Receipt Date: 20210628
  Transmission Date: 20210717
  Serious: Yes (Hospitalization)
  Sender: FDA-Public Use
  Company Number: US-AZURITY PHARMACEUTICALS, INC.-2021AZY00061

PATIENT
  Age: 51 Year
  Sex: Female

DRUGS (6)
  1. CEFAZOLIN [Concomitant]
     Active Substance: CEFAZOLIN
     Indication: BACTERIAL INFECTION
     Dosage: 2 G
     Route: 042
  2. VANCOMYCIN HYDROCHLORIDE. [Suspect]
     Active Substance: VANCOMYCIN HYDROCHLORIDE
     Indication: BACTERIAL INFECTION
     Dosage: 2 G INITIATED
     Route: 042
  3. VANCOMYCIN HYDROCHLORIDE. [Suspect]
     Active Substance: VANCOMYCIN HYDROCHLORIDE
     Dosage: 2 G (ARTICULATING SPACER COMPONENT WERE FABRICATED WITH 2 SEPARATE BAGS OF HIGH VISCOSITY BONE CEMEN
     Route: 065
  4. CEFTRIAXONE. [Concomitant]
     Active Substance: CEFTRIAXONE
     Indication: BACTERIAL INFECTION
     Dosage: 2 G, 1X/DAY
     Route: 042
  5. VANCOMYCIN HYDROCHLORIDE. [Suspect]
     Active Substance: VANCOMYCIN HYDROCHLORIDE
     Dosage: 2 G, 2X/DAY
     Route: 042
  6. TOBRAMYCIN. [Concomitant]
     Active Substance: TOBRAMYCIN
     Indication: BACTERIAL INFECTION
     Dosage: 1.2 G  (ARTICULATING SPACER COMPONENT WERE FABRICATED WITH 2 SEPARATE BAGS OF HIGH VISCOSITY BONE CE
     Route: 065

REACTIONS (1)
  - Drug reaction with eosinophilia and systemic symptoms [Recovered/Resolved]
